FAERS Safety Report 16676922 (Version 2)
Quarter: 2019Q3

REPORT INFORMATION
  Report Type: Spontaneous
  Country: US (occurrence: US)
  Receive Date: 20190807
  Receipt Date: 20190912
  Transmission Date: 20191004
  Serious: Yes (Other)
  Sender: FDA-Public Use
  Company Number: US-AUROBINDO-AUR-APL-2019-044771

PATIENT
  Sex: Female

DRUGS (1)
  1. AMOXICILLIN POWDER FOR ORAL SUSPENSION USP 400 MG/5 ML [Suspect]
     Active Substance: AMOXICILLIN
     Indication: PRODUCT USED FOR UNKNOWN INDICATION
     Dosage: UNK
     Route: 065
     Dates: start: 20190722

REACTIONS (1)
  - Haemorrhage [Unknown]
